FAERS Safety Report 5511621-7 (Version None)
Quarter: 2007Q4

REPORT INFORMATION
  Report Type: 
  Country: None (occurrence: None)
  Receive Date: 20071109
  Receipt Date: 20071030
  Transmission Date: 20080405
  Serious: Yes (Other)
  Sender: FDA-Public Use
  Company Number: JP-PFIZER INC-2007092081

PATIENT
  Age: 78 Year
  Sex: Male

DRUGS (3)
  1. SULPERAZON [Suspect]
     Indication: URINARY TRACT INFECTION
     Dosage: DAILY DOSE:2GRAM
     Route: 042
  2. SOLUTIONS FOR PARENTERAL NUTRITION [Concomitant]
  3. SODIUM CHLORIDE [Concomitant]

REACTIONS (1)
  - PANCYTOPENIA [None]
